FAERS Safety Report 4526797-8 (Version None)
Quarter: 2004Q4

REPORT INFORMATION
  Report Type: 
  Country: None (occurrence: None)
  Receive Date: 20041213
  Receipt Date: 20041201
  Transmission Date: 20050328
  Serious: Yes (Death)
  Sender: FDA-Public Use
  Company Number: 430083K04USA

PATIENT
  Age: 53 Year
  Sex: Female
  Weight: 86 kg

DRUGS (19)
  1. NOVANTRONE [Suspect]
     Indication: MULTIPLE SCLEROSIS
     Dosage: 12 MG/M2, 1 IN 3 MONTHS
     Dates: start: 20010201, end: 20030801
  2. ZANAFLEX [Concomitant]
  3. SINEMET-CR (SINEMET) [Concomitant]
  4. KLONOPIN [Concomitant]
  5. DITROPAN [Concomitant]
  6. MACRODANTIN [Concomitant]
  7. PRILOSEC [Concomitant]
  8. SYNTHROID [Concomitant]
  9. ZOLOFT [Concomitant]
  10. AVONEX [Concomitant]
  11. COPAXONE [Concomitant]
  12. MULTIVITAMIN [Concomitant]
  13. VITAMIN C (ASCORBIC ACID) [Concomitant]
  14. VITAMIN E [Concomitant]
  15. VITAMIN B COMPLEX (B-KOMPLEX ^LECIVA^) [Concomitant]
  16. CALCIUM (CALCIUM) [Concomitant]
  17. HYPERICUM (HYPERICUM EXTRACT) [Concomitant]
  18. GLUCOSAMINE SULFATE (GLUCOSAINE SULFATE) [Concomitant]
  19. LEXAPRO [Concomitant]

REACTIONS (2)
  - CHEST PAIN [None]
  - FEMUR FRACTURE [None]
